FAERS Safety Report 19349705 (Version 1)
Quarter: 2021Q2

REPORT INFORMATION
  Report Type: Spontaneous
  Country: US (occurrence: US)
  Receive Date: 20210528
  Receipt Date: 20210528
  Transmission Date: 20210717
  Serious: No
  Sender: FDA-Public Use
  Company Number: None

PATIENT
  Age: 49 Year
  Sex: Female

DRUGS (1)
  1. HUMIRA [Suspect]
     Active Substance: ADALIMUMAB
     Indication: CROHN^S DISEASE
     Dosage: OTHER DOSE:80MG/0.8ML;?
     Route: 058
     Dates: start: 202104

REACTIONS (2)
  - Mental status changes [None]
  - Fatigue [None]

NARRATIVE: CASE EVENT DATE: 20210519
